FAERS Safety Report 18416527 (Version 5)
Quarter: 2022Q2

REPORT INFORMATION
  Report Type: Spontaneous
  Country: US (occurrence: US)
  Receive Date: 20201022
  Receipt Date: 20220502
  Transmission Date: 20220721
  Serious: No
  Sender: FDA-Public Use
  Company Number: US-PFIZER INC-2018165105

PATIENT
  Age: 63 Year
  Sex: Female

DRUGS (6)
  1. LYRICA [Suspect]
     Active Substance: PREGABALIN
     Indication: Neuralgia
     Dosage: 525 MG, DAILY (1 CAP 225MG Q AM AND 300MG Q HS)
     Route: 048
  2. LYRICA [Suspect]
     Active Substance: PREGABALIN
     Dosage: 525 MG, DAILY (1 CAP 225MG Q AM AND 300MG Q HS)
     Route: 048
  3. LYRICA [Suspect]
     Active Substance: PREGABALIN
     Dosage: 225 MG, 1X/DAY (1 CAP ORAL IN THE MORNING)
     Route: 048
  4. LYRICA [Suspect]
     Active Substance: PREGABALIN
     Dosage: 100 MG, DAILY, (1 CAP (100 MG) ORAL DAILY)
     Route: 048
  5. LYRICA [Suspect]
     Active Substance: PREGABALIN
     Dosage: 400 MG, DAILY, (100 MG Q (EVERY) AM (MORNING) AND 300 MG Q (EVERY) HS (BED TIME))
     Route: 048
  6. LYRICA [Suspect]
     Active Substance: PREGABALIN
     Dosage: 300 MG, 1X/DAY (1 CAP (300 MG) ORAL DAILY) (QHS))
     Route: 048

REACTIONS (4)
  - Feeling of despair [Unknown]
  - Nervousness [Unknown]
  - Tremor [Unknown]
  - Visual impairment [Unknown]
